FAERS Safety Report 8695240 (Version 2)
Quarter: 2018Q4

REPORT INFORMATION
  Report Type: Spontaneous
  Country: ES (occurrence: ES)
  Receive Date: 20120731
  Receipt Date: 20180730
  Transmission Date: 20190205
  Serious: Yes (Life-Threatening, Hospitalization, Other)
  Sender: FDA-Public Use
  Company Number: ES-BRISTOL-MYERS SQUIBB COMPANY-16802837

PATIENT
  Age: 79 Year
  Sex: Male

DRUGS (6)
  1. METFORMIN HYDROCHLORIDE. [Suspect]
     Active Substance: METFORMIN HYDROCHLORIDE
     Indication: DIABETES MELLITUS
     Dosage: 1700 MG, BID
     Route: 048
     Dates: start: 2010, end: 20120610
  2. CARVEDILOL. [Suspect]
     Active Substance: CARVEDILOL
     Indication: ISCHAEMIC CARDIOMYOPATHY
     Dosage: 50 MG, BID
     Route: 048
     Dates: start: 2010, end: 20120610
  3. MANIDIPINE [Suspect]
     Active Substance: MANIDIPINE
     Indication: HYPERTENSION
     Dosage: 20 MG, BID
     Route: 048
     Dates: start: 2010, end: 20120610
  4. NITROGLYCERINE [Suspect]
     Active Substance: NITROGLYCERIN
     Indication: ISCHAEMIC CARDIOMYOPATHY
     Dosage: 10 MG, QD
     Route: 048
     Dates: start: 2010, end: 20120610
  5. ASPIRIN                            /00002701/ [Suspect]
     Active Substance: ASPIRIN
     Indication: ISCHAEMIC CARDIOMYOPATHY
     Dosage: 300 MG, QD
     Route: 048
     Dates: start: 2011, end: 20120610
  6. EPROSARTAN   MESILATE [Suspect]
     Active Substance: EPROSARTAN MESYLATE
     Indication: HYPERTENSION
     Dosage: UNK UNK, QD
     Route: 065
     Dates: start: 2011, end: 20120610

REACTIONS (3)
  - Hyperkalaemia [Recovered/Resolved]
  - Lactic acidosis [Recovered/Resolved]
  - Acute kidney injury [Recovered/Resolved]

NARRATIVE: CASE EVENT DATE: 20120611
